FAERS Safety Report 15053343 (Version 2)
Quarter: 2018Q3

REPORT INFORMATION
  Report Type: Spontaneous
  Country: AU (occurrence: AU)
  Receive Date: 20180622
  Receipt Date: 20180711
  Transmission Date: 20181010
  Serious: Yes (Other)
  Sender: FDA-Public Use
  Company Number: AU-JNJFOC-20180627282

PATIENT
  Sex: Female
  Weight: 47.7 kg

DRUGS (1)
  1. STELARA [Suspect]
     Active Substance: USTEKINUMAB
     Indication: PRODUCT USED FOR UNKNOWN INDICATION
     Route: 058
     Dates: start: 20171219

REACTIONS (3)
  - Respiratory tract infection [Not Recovered/Not Resolved]
  - Lower respiratory tract infection [Unknown]
  - Underweight [Unknown]

NARRATIVE: CASE EVENT DATE: 2018
